FAERS Safety Report 5378932-X (Version None)
Quarter: 2007Q3

REPORT INFORMATION
  Report Type: 
  Country: None (occurrence: None)
  Receive Date: 20070705
  Receipt Date: 20070409
  Transmission Date: 20080115
  Serious: Yes (Disabling, Other)
  Sender: FDA-Public Use
  Company Number: A0644619A

PATIENT
  Age: 81 Year
  Sex: Female
  Weight: 53.6 kg

DRUGS (7)
  1. PARNATE [Suspect]
     Indication: DEPRESSION
     Dosage: 40MG PER DAY
     Route: 048
     Dates: start: 19740101
  2. CHLORPROMAZINE [Suspect]
  3. NEXIUM [Concomitant]
  4. BENICAR [Concomitant]
  5. CRESTOR [Concomitant]
  6. AVANDIA [Concomitant]
  7. PROBENECID [Concomitant]

REACTIONS (1)
  - INSOMNIA [None]
